FAERS Safety Report 11684185 (Version 1)
Quarter: 2015Q4

REPORT INFORMATION
  Report Type: Spontaneous
  Country: PH (occurrence: PH)
  Receive Date: 20151029
  Receipt Date: 20151029
  Transmission Date: 20160304
  Serious: Yes (Hospitalization)
  Sender: FDA-Public Use
  Company Number: PH-BAYER-2015-449831

PATIENT
  Age: 30 Year
  Sex: Female

DRUGS (1)
  1. QLAIRA [Suspect]
     Active Substance: DIENOGEST\ESTRADIOL VALERATE
     Indication: MENORRHAGIA
     Dosage: UNK
     Dates: start: 201509

REACTIONS (3)
  - Immune thrombocytopenic purpura [None]
  - Vaginal haemorrhage [None]
  - Platelet count decreased [None]

NARRATIVE: CASE EVENT DATE: 2015
